FAERS Safety Report 7127675-0 (Version None)
Quarter: 2010Q4

REPORT INFORMATION
  Report Type: 
  Country: None (occurrence: None)
  Receive Date: 20101130
  Receipt Date: 20101116
  Transmission Date: 20110411
  Serious: No
  Sender: FDA-Public Use
  Company Number: US-BIOGENIDEC-2010BI014450

PATIENT
  Sex: Female

DRUGS (2)
  1. TYSABRI [Suspect]
     Indication: MULTIPLE SCLEROSIS
     Route: 042
     Dates: start: 20070831, end: 20071023
  2. TYSABRI [Suspect]
     Route: 042
     Dates: start: 20090921

REACTIONS (2)
  - DEPRESSION [None]
  - WEIGHT DECREASED [None]
